FAERS Safety Report 23217381 (Version 3)
Quarter: 2024Q1

REPORT INFORMATION
  Report Type: Spontaneous
  Country: CA (occurrence: CA)
  Receive Date: 20231122
  Receipt Date: 20240129
  Transmission Date: 20240410
  Serious: Yes (Other)
  Sender: FDA-Public Use
  Company Number: CA-PFIZER INC-202300271873

PATIENT
  Age: 20 Year
  Sex: Female

DRUGS (1)
  1. ABRILADA [Suspect]
     Active Substance: ADALIMUMAB-AFZB
     Indication: Crohn^s disease
     Dosage: 1 DF (WK0: 160 MG, WK2: 80MG, THEN 40MG EVERY OTHER WK STARTING WK4)
     Route: 058
     Dates: start: 20230513

REACTIONS (5)
  - Pyoderma gangrenosum [Unknown]
  - Condition aggravated [Not Recovered/Not Resolved]
  - Off label use [Unknown]
  - Anal fissure [Unknown]
  - Abscess [Unknown]

NARRATIVE: CASE EVENT DATE: 20231112
